FAERS Safety Report 22634462 (Version 1)
Quarter: 2023Q2

REPORT INFORMATION
  Report Type: Spontaneous
  Country: US (occurrence: US)
  Receive Date: 20230623
  Receipt Date: 20230623
  Transmission Date: 20230722
  Serious: No
  Sender: FDA-Public Use
  Company Number: US-VIIV HEALTHCARE LIMITED-US2023083761

PATIENT
  Age: 14 Year
  Sex: Female

DRUGS (3)
  1. SELZENTRY [Suspect]
     Active Substance: MARAVIROC
     Indication: Post viral fatigue syndrome
     Dosage: UNK (150 MG)
     Route: 048
  2. SELZENTRY [Suspect]
     Active Substance: MARAVIROC
     Indication: Insomnia
  3. SELZENTRY [Suspect]
     Active Substance: MARAVIROC
     Indication: Post-acute COVID-19 syndrome

REACTIONS (1)
  - Product use in unapproved indication [Unknown]

NARRATIVE: CASE EVENT DATE: 20230614
